FAERS Safety Report 4843358-1 (Version None)
Quarter: 2005Q4

REPORT INFORMATION
  Report Type: 
  Country: None (occurrence: None)
  Receive Date: 20051201
  Receipt Date: 20051123
  Transmission Date: 20060501
  Serious: Yes (Death, Hospitalization)
  Sender: FDA-Public Use
  Company Number: US-MERCK-0511USA04222

PATIENT
  Age: 70 Year
  Sex: Female

DRUGS (7)
  1. VIOXX [Suspect]
     Indication: ARTHRITIS
     Route: 048
     Dates: start: 20020601, end: 20031101
  2. EFFEXOR [Concomitant]
     Route: 065
  3. PREMARIN [Concomitant]
     Route: 065
  4. DIFLUCAN [Concomitant]
     Route: 065
  5. OMNICEF [Concomitant]
     Route: 065
  6. DIAZEPAM [Concomitant]
     Route: 065
  7. ADVAIR DISKUS 100/50 [Concomitant]
     Route: 065

REACTIONS (1)
  - DEATH [None]
